FAERS Safety Report 6911421-7 (Version None)
Quarter: 2010Q3

REPORT INFORMATION
  Report Type: 
  Country: None (occurrence: None)
  Receive Date: 20100806
  Receipt Date: 20100726
  Transmission Date: 20110219
  Serious: Yes (Other)
  Sender: FDA-Public Use
  Company Number: US-PFIZER INC-2010093805

PATIENT
  Sex: Female
  Weight: 99.773 kg

DRUGS (4)
  1. CHANTIX [Suspect]
     Indication: SMOKING CESSATION THERAPY
     Dosage: 0.5 MG, 2X/DAY
     Route: 048
     Dates: start: 20100710
  2. ADVAIR DISKUS 100/50 [Concomitant]
     Indication: BRONCHITIS
     Dosage: UNK
  3. NEXIUM [Concomitant]
     Indication: GASTROOESOPHAGEAL REFLUX DISEASE
     Dosage: UNK
  4. XANAX [Concomitant]
     Indication: ANXIETY DISORDER
     Dosage: UNK

REACTIONS (13)
  - AGGRESSION [None]
  - AGITATION [None]
  - ANGER [None]
  - DEPRESSED MOOD [None]
  - DRUG INEFFECTIVE [None]
  - FRUSTRATION [None]
  - HOSTILITY [None]
  - IRRITABILITY [None]
  - LARYNGITIS [None]
  - MOOD ALTERED [None]
  - OROPHARYNGEAL PAIN [None]
  - RASH [None]
  - SENSATION OF HEAVINESS [None]
